FAERS Safety Report 17703347 (Version 1)
Quarter: 2020Q2

REPORT INFORMATION
  Report Type: Report from Study
  Country: None (occurrence: US)
  Receive Date: 20200423
  Receipt Date: 20200423
  Transmission Date: 20200714
  Serious: Yes (Other)
  Sender: FDA-Public Use
  Company Number: US-ABBVIE-20K-163-3371598-00

PATIENT
  Sex: Male

DRUGS (3)
  1. VENCLEXTA [Suspect]
     Active Substance: VENETOCLAX
     Indication: REFRACTORY ANAEMIA WITH AN EXCESS OF BLASTS
  2. VENCLEXTA [Suspect]
     Active Substance: VENETOCLAX
     Indication: LUNG CARCINOMA CELL TYPE UNSPECIFIED STAGE I
  3. VENCLEXTA [Suspect]
     Active Substance: VENETOCLAX
     Indication: ANAEMIA
     Route: 048

REACTIONS (2)
  - Myelodysplastic syndrome [Unknown]
  - Lung neoplasm malignant [Unknown]
